FAERS Safety Report 5718294-9 (Version None)
Quarter: 2008Q2

REPORT INFORMATION
  Report Type: 
  Country: None (occurrence: None)
  Receive Date: 20080425
  Receipt Date: 20070810
  Transmission Date: 20081010
  Serious: No
  Sender: FDA-Public Use
  Company Number: US-ASTRAZENECA-2007UW08211

PATIENT
  Age: 35 Year
  Sex: Female

DRUGS (1)
  1. ZOMIG-ZMT [Suspect]
     Indication: MIGRAINE
     Route: 048

REACTIONS (5)
  - DRUG INEFFECTIVE [None]
  - NASAL DISCOMFORT [None]
  - NEURALGIA [None]
  - PHARYNGOLARYNGEAL PAIN [None]
  - SENSORY DISTURBANCE [None]
